FAERS Safety Report 8453285-9 (Version None)
Quarter: 2012Q2

REPORT INFORMATION
  Report Type: 
  Country: None (occurrence: None)
  Receive Date: 20120620
  Receipt Date: 20120517
  Transmission Date: 20120825
  Serious: No
  Sender: FDA-Public Use
  Company Number: US-VERTEX PHARMACEUTICALS INC.-AE-2012-006982

PATIENT
  Sex: Male
  Weight: 83.99 kg

DRUGS (3)
  1. INCIVEK [Suspect]
     Indication: HEPATITIS C
     Route: 048
     Dates: start: 20120226
  2. PEGASYS [Concomitant]
     Indication: HEPATITIS C
     Route: 058
     Dates: start: 20120226
  3. RIBAVIRIN [Concomitant]
     Indication: HEPATITIS C
     Route: 048
     Dates: start: 20120226

REACTIONS (12)
  - ANAEMIA [None]
  - DIZZINESS [None]
  - EAR PAIN [None]
  - NASAL CONGESTION [None]
  - CHILLS [None]
  - DYSPNOEA [None]
  - DECREASED APPETITE [None]
  - DRUG DOSE OMISSION [None]
  - FATIGUE [None]
  - URTICARIA [None]
  - INSOMNIA [None]
  - ASTHENIA [None]
